FAERS Safety Report 7532900-8 (Version None)
Quarter: 2011Q2

REPORT INFORMATION
  Report Type: 
  Country: None (occurrence: None)
  Receive Date: 20110608
  Receipt Date: 20110601
  Transmission Date: 20111010
  Serious: Yes (Other)
  Sender: FDA-Public Use
  Company Number: PR-ABBOTT-11P-131-0729890-00

PATIENT
  Sex: Female

DRUGS (1)
  1. HUMIRA [Suspect]
     Indication: RHEUMATOID ARTHRITIS
     Dosage: 1 SYRINGE EVERY 15 DAYS
     Route: 058
     Dates: start: 20110510, end: 20110526

REACTIONS (4)
  - LARYNGOSPASM [None]
  - LIP SWELLING [None]
  - RASH [None]
  - DYSPHAGIA [None]
